FAERS Safety Report 5023356-8 (Version None)
Quarter: 2006Q2

REPORT INFORMATION
  Report Type: 
  Country: None (occurrence: None)
  Receive Date: 20060612
  Receipt Date: 20060530
  Transmission Date: 20061013
  Serious: Yes (Disabling)
  Sender: FDA-Public Use
  Company Number: 2006GB00925

PATIENT
  Age: 46 Year
  Sex: Female
  Weight: 51 kg

DRUGS (4)
  1. QUETIAPINE FUMARATE [Suspect]
     Indication: BIPOLAR DISORDER
     Route: 048
     Dates: start: 20060418, end: 20060515
  2. PAROXETINE HCL [Concomitant]
     Indication: BIPOLAR DISORDER
     Route: 048
     Dates: start: 19990101
  3. PRIADEL [Concomitant]
     Indication: BIPOLAR DISORDER
     Route: 048
     Dates: start: 19940101
  4. NORGESTON [Concomitant]
     Indication: CONTRACEPTION
     Route: 048
     Dates: start: 19970101

REACTIONS (3)
  - DYSTONIA [None]
  - EYE MOVEMENT DISORDER [None]
  - SEDATION [None]
